FAERS Safety Report 7262912-3 (Version None)
Quarter: 2011Q1

REPORT INFORMATION
  Report Type: 
  Country: None (occurrence: None)
  Receive Date: 20110130
  Receipt Date: 20100927
  Transmission Date: 20110831
  Serious: No
  Sender: FDA-Public Use
  Company Number: US-ABBOTT-10P-163-0673999-00

PATIENT
  Age: 31 Year
  Sex: Female

DRUGS (4)
  1. CLARITIN [Concomitant]
     Indication: HYPERSENSITIVITY
  2. PRILOSEC [Concomitant]
     Indication: DYSPEPSIA
  3. MAXALT [Concomitant]
     Indication: MIGRAINE
  4. HUMIRA [Suspect]
     Indication: CROHN'S DISEASE
     Dates: start: 20100801

REACTIONS (2)
  - PARAESTHESIA [None]
  - HYPOAESTHESIA [None]
